FAERS Safety Report 6081921-3 (Version None)
Quarter: 2009Q1

REPORT INFORMATION
  Report Type: 
  Country: None (occurrence: None)
  Receive Date: 20090218
  Receipt Date: 20080605
  Transmission Date: 20090719
  Serious: Yes (Hospitalization)
  Sender: FDA-Public Use
  Company Number: US-BRISTOL-MYERS SQUIBB COMPANY-14217012

PATIENT
  Age: 74 Year
  Sex: Male

DRUGS (2)
  1. GLUCOPHAGE [Suspect]
     Indication: DIABETES MELLITUS
  2. LANTUS [Concomitant]
     Indication: DIABETES MELLITUS
     Dosage: INITIAL DOSE WAS 15 UNITS/DAY
     Dates: end: 20080101

REACTIONS (2)
  - ARRHYTHMIA [None]
  - BLOOD GLUCOSE FLUCTUATION [None]
